FAERS Safety Report 4299008-9 (Version None)
Quarter: 2004Q1

REPORT INFORMATION
  Report Type: 
  Country: None (occurrence: None)
  Receive Date: 20040217
  Receipt Date: 20040205
  Transmission Date: 20041129
  Serious: Yes (Hospitalization, Congenital Anomaly)
  Sender: FDA-Public Use
  Company Number: 04P-056-0249747-00

PATIENT
  Age: 1 Day
  Sex: Male
  Weight: 2.3 kg

DRUGS (6)
  1. KALETRA [Suspect]
     Indication: DRUG EXPOSURE DURING PREGNANCY
  2. BROMAZEPAM [Suspect]
     Indication: DRUG EXPOSURE DURING PREGNANCY
  3. ZIDOVUDINE W/LAMIVUDINE [Suspect]
     Indication: DRUG EXPOSURE DURING PREGNANCY
     Dosage: 1 IN 1 D
  4. ZOLPIDEM TARTRATE [Suspect]
     Indication: DRUG EXPOSURE DURING PREGNANCY
  5. ZIDOVUDINE [Suspect]
     Indication: HIV INFECTION
     Dates: start: 20040107, end: 20040113
  6. BUPRENORPHINE HYDROCHLORIDE [Suspect]
     Indication: DRUG EXPOSURE DURING PREGNANCY

REACTIONS (12)
  - CAESAREAN SECTION [None]
  - CONGENITAL ATRIAL SEPTAL DEFECT [None]
  - CONGENITAL VENTRICULAR SEPTAL DEFECT [None]
  - FOETAL DISTRESS SYNDROME [None]
  - HYPOGLYCAEMIA [None]
  - LACTIC ACIDOSIS [None]
  - MATERNAL DRUGS AFFECTING FOETUS [None]
  - NEONATAL DISORDER [None]
  - RENAL FAILURE [None]
  - THROMBOCYTOPENIA [None]
  - TRISOMY 21 [None]
  - VENA CAVA THROMBOSIS [None]
